FAERS Safety Report 19123603 (Version 4)
Quarter: 2022Q1

REPORT INFORMATION
  Report Type: Spontaneous
  Country: US (occurrence: US)
  Receive Date: 20210412
  Receipt Date: 20220131
  Transmission Date: 20220423
  Serious: No
  Sender: FDA-Public Use
  Company Number: US-PFIZER INC-2021201233

PATIENT
  Age: 85 Year
  Sex: Female
  Weight: 81.633 kg

DRUGS (2)
  1. TOVIAZ [Suspect]
     Active Substance: FESOTERODINE FUMARATE
     Indication: Urinary incontinence
     Dosage: UNK
     Route: 048
     Dates: start: 2018
  2. TOVIAZ [Suspect]
     Active Substance: FESOTERODINE FUMARATE
     Indication: Stress urinary incontinence
     Dosage: 4 MG, DAILY
     Route: 048

REACTIONS (4)
  - Off label use [Unknown]
  - Scoliosis [Unknown]
  - Pain [Unknown]
  - Mobility decreased [Unknown]
